FAERS Safety Report 14998237 (Version 1)
Quarter: 2018Q2

REPORT INFORMATION
  Report Type: Spontaneous
  Country: US (occurrence: US)
  Receive Date: 20180519
  Receipt Date: 20180519
  Transmission Date: 20180711
  Serious: Yes (Hospitalization)
  Sender: FDA-Public Use
  Company Number: None

PATIENT
  Age: 4 Year
  Sex: Female
  Weight: 18.2 kg

DRUGS (7)
  1. MITOXANTRONE HYDROCHLORIDE. [Suspect]
     Active Substance: MITOXANTRONE HYDROCHLORIDE
     Dates: end: 20180419
  2. CYTARABINE. [Suspect]
     Active Substance: CYTARABINE
     Dates: end: 20180502
  3. DEXAMETHASONE. [Suspect]
     Active Substance: DEXAMETHASONE
     Dates: end: 20180507
  4. HYDROCORTISONE. [Suspect]
     Active Substance: HYDROCORTISONE
     Dates: end: 20180502
  5. METHOTREXATE. [Suspect]
     Active Substance: METHOTREXATE
     Dates: end: 20180502
  6. VINCRISTINE SULFATE. [Suspect]
     Active Substance: VINCRISTINE SULFATE
     Dates: end: 20180502
  7. ONCASPAR [Suspect]
     Active Substance: PEGASPARGASE
     Dates: end: 20180504

REACTIONS (3)
  - Hepatic steatosis [None]
  - Blood triglycerides increased [None]
  - Abdominal pain [None]

NARRATIVE: CASE EVENT DATE: 20180509
